FAERS Safety Report 9960117 (Version 1)
Quarter: 2014Q1

REPORT INFORMATION
  Report Type: Spontaneous
  Country: US (occurrence: None)
  Receive Date: 20140228
  Receipt Date: 20140228
  Transmission Date: 20141002
  Serious: Yes (Hospitalization)
  Sender: FDA-Public Use
  Company Number: None

PATIENT
  Age: 63 Year
  Sex: Male

DRUGS (1)
  1. BACTRIM [Suspect]
     Indication: CELLULITIS
     Route: 048
     Dates: start: 20130916, end: 20130924

REACTIONS (3)
  - Erythema [None]
  - Erythema [None]
  - Erythema [None]
